FAERS Safety Report 22041025 (Version 1)
Quarter: 2023Q1

REPORT INFORMATION
  Report Type: Spontaneous
  Country: CA (occurrence: None)
  Receive Date: 20230226
  Receipt Date: 20230226
  Transmission Date: 20230417
  Serious: Yes (Disabling)
  Sender: FDA-Public Use
  Company Number: None

PATIENT
  Age: 36 Year
  Sex: Female
  Weight: 90 kg

DRUGS (1)
  1. ARIPIPRAZOLE [Suspect]
     Active Substance: ARIPIPRAZOLE
     Indication: Hallucination, auditory
     Dosage: OTHER QUANTITY : 50 TABLET(S);?FREQUENCY : DAILY;?
     Route: 048

REACTIONS (2)
  - Stasis dermatitis [None]
  - Peripheral venous disease [None]

NARRATIVE: CASE EVENT DATE: 20170801
